FAERS Safety Report 8143426-5 (Version None)
Quarter: 2012Q1

REPORT INFORMATION
  Report Type: 
  Country: None (occurrence: None)
  Receive Date: 20120217
  Receipt Date: 20120214
  Transmission Date: 20120608
  Serious: Yes (Life-Threatening, Hospitalization)
  Sender: FDA-Public Use
  Company Number: US-AMGEN-USASP2011061876

PATIENT
  Age: 11 Year
  Sex: Male

DRUGS (12)
  1. CISPLATIN [Suspect]
     Indication: SARCOMA
     Dosage: 60 MG/M2, UNK
     Route: 042
     Dates: start: 20011002
  2. IFOSFAMIDE [Suspect]
     Indication: SARCOMA
     Dosage: 2.8 G/M2, UNK
     Route: 042
     Dates: start: 20011002
  3. TRASTUZUMAB [Suspect]
     Indication: SARCOMA
     Dosage: 4 MG/KG, UNK
     Route: 042
     Dates: start: 20011002
  4. MESNA [Suspect]
     Dosage: 360 MG/M2, UNK
     Route: 042
  5. ETOPOSIDE [Suspect]
     Indication: SARCOMA
     Dosage: UNK
     Route: 042
     Dates: start: 20011002
  6. METHOTREXATE [Suspect]
     Indication: SARCOMA
     Dosage: 12 G/M2, UNK
     Route: 042
     Dates: start: 20011002
  7. FILGRASTIM [Suspect]
     Indication: SARCOMA
     Dosage: 5 MUG/KG, UNK
     Route: 058
     Dates: start: 20011002
  8. LEUCOVORIN CALCIUM [Suspect]
     Indication: SARCOMA
     Dosage: 15 MG, UNK
     Route: 048
     Dates: start: 20011002
  9. DOXORUBICIN HCL [Suspect]
     Indication: SARCOMA
     Dosage: 37.5 MG/M2, UNK
     Route: 042
     Dates: start: 20011002
  10. DEXRAZOXANE HYDROCHLORIDE [Suspect]
     Indication: SARCOMA
     Dosage: 375 MG/M2, UNK
     Route: 042
     Dates: start: 20011002
  11. MESNA [Suspect]
     Indication: SARCOMA
     Dosage: 560 MG/M2, UNK
     Route: 042
     Dates: start: 20011002
  12. TRASTUZUMAB [Suspect]
     Dosage: 2 MG/KG, UNK
     Route: 042

REACTIONS (2)
  - PYREXIA [None]
  - INFECTION [None]
